FAERS Safety Report 24964059 (Version 1)
Quarter: 2025Q1

REPORT INFORMATION
  Report Type: Spontaneous
  Country: FR (occurrence: FR)
  Receive Date: 20250213
  Receipt Date: 20250213
  Transmission Date: 20250409
  Serious: Yes (Other)
  Sender: REGENERON
  Company Number: None

PATIENT
  Age: 70 Year
  Sex: Male

DRUGS (1)
  1. PRALUENT [Suspect]
     Active Substance: ALIROCUMAB
     Indication: Primary hypercholesterolaemia
     Dosage: 1 DF, QM
     Route: 058
     Dates: start: 20240115, end: 20240515

REACTIONS (1)
  - Administration site reaction [Recovered/Resolved]

NARRATIVE: CASE EVENT DATE: 20240315
